FAERS Safety Report 17733557 (Version 1)
Quarter: 2020Q2

REPORT INFORMATION
  Report Type: Spontaneous
  Country: US (occurrence: US)
  Receive Date: 20200501
  Receipt Date: 20200501
  Transmission Date: 20200714
  Serious: No
  Sender: FDA-Public Use
  Company Number: US-MYLANLABS-2020M1040709

PATIENT

DRUGS (5)
  1. NIFEDIPINE. [Concomitant]
     Active Substance: NIFEDIPINE
     Indication: HYPERTENSION
     Dosage: 30 MILLIGRAM DAILY
  2. ATENOLOL. [Concomitant]
     Active Substance: ATENOLOL
     Indication: HYPERTENSION
     Dosage: 25 MILLIGRAM, QD
  3. OXYBUTYNIN. [Suspect]
     Active Substance: OXYBUTYNIN CHLORIDE
     Indication: BLADDER DISORDER
     Dosage: UNK
     Dates: start: 2019
  4. ALPRAZOLAM. [Concomitant]
     Active Substance: ALPRAZOLAM
     Indication: ANXIETY
     Dosage: 1 MILLIGRAM, BID
  5. LISINOPRIL. [Concomitant]
     Active Substance: LISINOPRIL
     Indication: HYPERTENSION
     Dosage: 40 MILLIGRAM, QD

REACTIONS (1)
  - Pharyngeal swelling [Recovered/Resolved]

NARRATIVE: CASE EVENT DATE: 2019
